FAERS Safety Report 25791424 (Version 1)
Quarter: 2025Q3

REPORT INFORMATION
  Report Type: Spontaneous
  Country: US (occurrence: US)
  Receive Date: 20250911
  Receipt Date: 20250911
  Transmission Date: 20251021
  Serious: Yes (Hospitalization, Other)
  Sender: MERCK SHARP & DOHME LLC
  Company Number: US-009507513-2326575

PATIENT
  Sex: Male

DRUGS (3)
  1. PEMBROLIZUMAB [Suspect]
     Active Substance: PEMBROLIZUMAB
     Indication: Metastatic malignant melanoma
     Dosage: 2 MG/KG, Q3W
     Dates: start: 202304, end: 202405
  2. DABRAFENIB [Suspect]
     Active Substance: DABRAFENIB
     Indication: Metastatic malignant melanoma
     Dosage: 120 MG, BID DOSED CONTINOUSLY
     Dates: start: 202401
  3. TRAMETINIB [Suspect]
     Active Substance: TRAMETINIB
     Indication: Metastatic malignant melanoma
     Dosage: 2 MG, QD DOSED CONTINOUSLY
     Dates: start: 202401

REACTIONS (7)
  - Cytokine release syndrome [Unknown]
  - Adrenal insufficiency [Unknown]
  - Colitis [Unknown]
  - Hypothyroidism [Unknown]
  - Product use issue [Unknown]
  - Drug intolerance [Unknown]
  - Thyroiditis [Unknown]

NARRATIVE: CASE EVENT DATE: 20230101
